FAERS Safety Report 21717495 (Version 1)
Quarter: 2022Q4

REPORT INFORMATION
  Report Type: Spontaneous
  Country: HK (occurrence: HK)
  Receive Date: 20221212
  Receipt Date: 20221212
  Transmission Date: 20230112
  Serious: Yes (Hospitalization, Other)
  Sender: FDA-Public Use
  Company Number: HK-ALLERGAN-2240099US

PATIENT
  Sex: Female

DRUGS (1)
  1. BOTOX [Suspect]
     Active Substance: ONABOTULINUMTOXINA
     Indication: Skin wrinkling
     Dosage: UNK UNK, SINGLE
     Dates: start: 20221107, end: 20221107

REACTIONS (8)
  - Hypoaesthesia [Unknown]
  - Botulism [Unknown]
  - Muscle rigidity [Unknown]
  - Dyspnoea [Unknown]
  - Dysarthria [Unknown]
  - Vision blurred [Unknown]
  - Muscular weakness [Unknown]
  - Product administered from unauthorised provider [Unknown]

NARRATIVE: CASE EVENT DATE: 20221107
